FAERS Safety Report 9122078 (Version 2)
Quarter: 2013Q1

REPORT INFORMATION
  Report Type: Spontaneous
  Country: US (occurrence: None)
  Receive Date: 20130124
  Receipt Date: 20130325
  Transmission Date: 20140127
  Serious: No
  Sender: FDA-Public Use
  Company Number: 2012US-004418

PATIENT
  Age: 54 Year
  Sex: Male
  Weight: 83.5 kg

DRUGS (8)
  1. OMONTYS (PEGINESATIDE) SOLUTION FOR INJECTION [Suspect]
     Indication: NEPHROGENIC ANAEMIA
     Route: 042
     Dates: start: 20120928, end: 20120928
  2. ASACOL (MESALAZINE) [Concomitant]
  3. METOCLOPRAMIDE (METOCLOPRAMIDE) [Concomitant]
  4. TUMS (CALCIUM CARBONATE, MAGNESIUM CARBONATE,  MAGNESIUM TRISILICATE) [Concomitant]
  5. VENOFER [Concomitant]
  6. ZEMPLAR (PARICALCITOL) [Concomitant]
  7. KAYEXALATE (SODIUIM POLYSTYRENE SULFONATE) [Concomitant]
  8. HEPARIN (HEPARIN) [Concomitant]

REACTIONS (5)
  - Pruritus [None]
  - Feeling hot [None]
  - Palpitations [None]
  - Hyperhidrosis [None]
  - Injection site extravasation [None]
